FAERS Safety Report 8604286 (Version 3)
Quarter: 2014Q2

REPORT INFORMATION
  Report Type: Spontaneous
  Country: NO (occurrence: NO)
  Receive Date: 20120608
  Receipt Date: 20140402
  Transmission Date: 20141212
  Serious: Yes (Hospitalization, Disabling)
  Sender: FDA-Public Use
  Company Number: NO-PFIZER INC-2012077865

PATIENT
  Age: 67 Year
  Sex: Female

DRUGS (5)
  1. NORVASC [Suspect]
     Indication: HYPERTENSION
     Dosage: 5 MG, 1X/DAY
     Route: 048
     Dates: start: 201203, end: 201203
  2. ZANIDIP [Suspect]
     Indication: HYPERTENSION
     Dosage: 10 MG, 1X/DAY
     Route: 048
  3. FURIX RETARD [Concomitant]
     Indication: HYPERTENSION
     Route: 048
  4. ALBYL-E [Concomitant]
     Dosage: 75 MG, 1X/DAY
     Route: 048
  5. VIVAL [Concomitant]
     Dosage: 5 MG, 1X/DAY
     Route: 048

REACTIONS (9)
  - Chronic obstructive pulmonary disease [Recovered/Resolved]
  - Oedema [Recovering/Resolving]
  - Allergy to chemicals [Recovering/Resolving]
  - Photosensitivity reaction [Recovering/Resolving]
  - Dermatitis [Recovering/Resolving]
  - Dry eye [Recovered/Resolved]
  - Rash [Recovered/Resolved]
  - Panic attack [Recovered/Resolved]
  - Depressed mood [Recovered/Resolved]
